FAERS Safety Report 5247208-3 (Version None)
Quarter: 2007Q1

REPORT INFORMATION
  Report Type: 
  Country: None (occurrence: None)
  Receive Date: 20070220
  Receipt Date: 20070201
  Transmission Date: 20070707
  Serious: Yes (Other)
  Sender: FDA-Public Use
  Company Number: 2007AD000008

PATIENT
  Age: 5 Year
  Sex: Female
  Weight: 27.2158 kg

DRUGS (3)
  1. KEFLEX [Suspect]
     Indication: DRUG USE FOR UNKNOWN INDICATION
     Dosage: 30 MG; QD
     Dates: start: 20020928
  2. SOMATROPIN [Concomitant]
  3. LAMOTRIGINE [Concomitant]

REACTIONS (3)
  - KYPHOSIS [None]
  - LUMBAR SPINE FLATTENING [None]
  - SCOLIOSIS [None]
